FAERS Safety Report 14247481 (Version 1)
Quarter: 2017Q4

REPORT INFORMATION
  Report Type: Spontaneous
  Country: US (occurrence: None)
  Receive Date: 20171201
  Receipt Date: 20171201
  Transmission Date: 20180321
  Serious: Yes (Life-Threatening, Hospitalization)
  Sender: FDA-Public Use
  Company Number: None

PATIENT
  Age: 67 Year
  Sex: Male
  Weight: 100.92 kg

DRUGS (2)
  1. NAPROXEN. [Suspect]
     Active Substance: NAPROXEN
     Indication: PAIN
     Route: 048
     Dates: start: 20171009, end: 20171015
  2. METHYLPREDNISOLONE. [Suspect]
     Active Substance: METHYLPREDNISOLONE
     Indication: PAIN
     Dates: start: 20171009, end: 20171015

REACTIONS (5)
  - Hypotension [None]
  - Therapy cessation [None]
  - Dizziness [None]
  - Duodenal ulcer haemorrhage [None]
  - Melaena [None]

NARRATIVE: CASE EVENT DATE: 20171015
